FAERS Safety Report 6071080-5 (Version None)
Quarter: 2009Q1

REPORT INFORMATION
  Report Type: 
  Country: None (occurrence: None)
  Receive Date: 20090209
  Receipt Date: 20081006
  Transmission Date: 20090719
  Serious: No
  Sender: FDA-Public Use
  Company Number: A0750637A

PATIENT
  Age: 38 Year
  Sex: Female

DRUGS (1)
  1. PAXIL CR [Suspect]
     Indication: DEPRESSION
     Dosage: 12.5MG PER DAY
     Route: 048
     Dates: start: 20081002

REACTIONS (3)
  - HEADACHE [None]
  - NAUSEA [None]
  - VOMITING [None]
